FAERS Safety Report 18505996 (Version 2)
Quarter: 2020Q4

REPORT INFORMATION
  Report Type: Report from Study
  Country: US (occurrence: US)
  Receive Date: 20201116
  Receipt Date: 20201215
  Transmission Date: 20210114
  Serious: Yes (Hospitalization)
  Sender: FDA-Public Use
  Company Number: US-JNJFOC-20201106941

PATIENT
  Age: 79 Year
  Sex: Female
  Weight: 110.32 kg

DRUGS (3)
  1. OPSUMIT [Concomitant]
     Active Substance: MACITENTAN
  2. SELEXIPAG [Suspect]
     Active Substance: SELEXIPAG
     Indication: PULMONARY HYPERTENSION
     Route: 048
  3. TADALAFIL. [Concomitant]
     Active Substance: TADALAFIL

REACTIONS (5)
  - Oedema peripheral [Unknown]
  - Peripheral venous disease [Unknown]
  - Adverse reaction [Unknown]
  - Blister [Unknown]
  - Drug intolerance [Unknown]

NARRATIVE: CASE EVENT DATE: 20201102
